FAERS Safety Report 9586437 (Version 1)
Quarter: 2013Q4

REPORT INFORMATION
  Report Type: Spontaneous
  Country: US (occurrence: US)
  Receive Date: 20131003
  Receipt Date: 20131003
  Transmission Date: 20140711
  Serious: Yes (Hospitalization)
  Sender: FDA-Public Use
  Company Number: US-COVIDIEN/TYCO HEALTHCARE/MALLINCKRODT-T201304474

PATIENT
  Age: 31 Year
  Sex: Male

DRUGS (4)
  1. METHADOSE [Suspect]
     Indication: DRUG THERAPY
     Dosage: 80 MG
  2. BENZODIAZEPINE RELATED DRUGS [Suspect]
     Indication: PRODUCT USED FOR UNKNOWN INDICATION
     Dosage: UNK
     Route: 065
  3. BARBITURATES AND DERIVATIVES [Suspect]
     Indication: PRODUCT USED FOR UNKNOWN INDICATION
     Dosage: UNK
     Route: 065
  4. FLUOXETINE [Concomitant]
     Indication: PRODUCT USED FOR UNKNOWN INDICATION
     Dosage: UNK
     Route: 065

REACTIONS (11)
  - Overdose [Recovered/Resolved]
  - Deafness neurosensory [Recovering/Resolving]
  - Intentional drug misuse [Recovered/Resolved]
  - Multi-organ failure [Recovered/Resolved]
  - Urinary tract infection [Not Recovered/Not Resolved]
  - Pneumonia aspiration [Not Recovered/Not Resolved]
  - Respiratory acidosis [Recovered/Resolved]
  - Cellulitis [Not Recovered/Not Resolved]
  - Acute myocardial infarction [Recovered/Resolved]
  - Pyrexia [Recovered/Resolved]
  - Chills [Recovered/Resolved]
